FAERS Safety Report 4895274-7 (Version None)
Quarter: 2006Q1

REPORT INFORMATION
  Report Type: 
  Country: None (occurrence: None)
  Receive Date: 20060130
  Receipt Date: 20060108
  Transmission Date: 20060701
  Serious: Yes (Hospitalization)
  Sender: FDA-Public Use
  Company Number: 2006000436

PATIENT
  Age: 45 Year
  Sex: Female
  Weight: 55 kg

DRUGS (5)
  1. IMIGRAN [Suspect]
     Route: 048
  2. KATADOLON [Suspect]
     Route: 048
  3. LYRICA [Suspect]
     Indication: EPILEPSY
     Route: 048
  4. OXYCODON [Suspect]
     Route: 048
  5. TOPAMAX [Suspect]
     Route: 048

REACTIONS (3)
  - CONFUSIONAL STATE [None]
  - PNEUMONIA [None]
  - SOMNOLENCE [None]
